FAERS Safety Report 5592700-5 (Version None)
Quarter: 2008Q1

REPORT INFORMATION
  Report Type: 
  Country: None (occurrence: None)
  Receive Date: 20080114
  Receipt Date: 20071231
  Transmission Date: 20080703
  Serious: Yes (Hospitalization)
  Sender: FDA-Public Use
  Company Number: 237392K07USA

PATIENT
  Age: 49 Year
  Sex: Female
  Weight: 88.4514 kg

DRUGS (8)
  1. REBIF [Suspect]
     Indication: MULTIPLE SCLEROSIS
     Dosage: 44 MCG, 3 IN 1 WEEKS, SUBCUTANEOUS
     Route: 058
     Dates: start: 20070226, end: 20070831
  2. AMBIEN [Concomitant]
  3. PROVIGIL [Concomitant]
  4. FLUOXETINE [Concomitant]
  5. CYMBALTAL              (DULOXETINE) [Concomitant]
  6. AMANTADINE HCL [Concomitant]
  7. KEPPRA [Concomitant]
  8. MIRAPEX [Concomitant]

REACTIONS (6)
  - ALANINE AMINOTRANSFERASE INCREASED [None]
  - ASPARTATE AMINOTRANSFERASE INCREASED [None]
  - FEELING ABNORMAL [None]
  - MULTIPLE SCLEROSIS RELAPSE [None]
  - TIC [None]
  - TREMOR [None]
